FAERS Safety Report 18925087 (Version 1)
Quarter: 2021Q1

REPORT INFORMATION
  Report Type: Spontaneous
  Country: IT (occurrence: IT)
  Receive Date: 20210222
  Receipt Date: 20210222
  Transmission Date: 20210420
  Serious: Yes (Hospitalization)
  Sender: FDA-Public Use
  Company Number: IT-PFIZER INC-2021151038

PATIENT
  Age: 33 Year
  Sex: Male

DRUGS (5)
  1. SERTRALINE HCL [Suspect]
     Active Substance: SERTRALINE HYDROCHLORIDE
     Indication: BIPOLAR DISORDER
     Dosage: 1 DF FREQ:{TOTAL}
     Route: 048
     Dates: start: 20200116, end: 20200116
  2. AULIN [Suspect]
     Active Substance: NIMESULIDE
     Dosage: 1 DF FREQ:{TOTAL}
     Route: 048
     Dates: start: 20200116, end: 20200116
  3. DEPAKIN [Suspect]
     Active Substance: VALPROATE SODIUM
     Indication: BIPOLAR DISORDER
     Dosage: 1 DF FREQ:{TOTAL}
     Route: 048
     Dates: start: 20200116, end: 20200116
  4. LORAZEPAM. [Suspect]
     Active Substance: LORAZEPAM
     Indication: BIPOLAR DISORDER
     Dosage: 20 ML FREQ:{TOTAL}
     Route: 048
     Dates: start: 20200116
  5. OLANZAPINE. [Suspect]
     Active Substance: OLANZAPINE
     Indication: BIPOLAR DISORDER
     Dosage: 1 DF FREQ:{TOTAL}
     Route: 048
     Dates: start: 20200116, end: 20200116

REACTIONS (7)
  - Drug abuse [Recovering/Resolving]
  - Disorientation [Recovering/Resolving]
  - Confabulation [Recovering/Resolving]
  - Negativism [Recovering/Resolving]
  - Off label use [Unknown]
  - Speech disorder [Recovering/Resolving]
  - Confusional state [Recovering/Resolving]

NARRATIVE: CASE EVENT DATE: 20200116
